FAERS Safety Report 20045731 (Version 1)
Quarter: 2021Q4

REPORT INFORMATION
  Report Type: Spontaneous
  Country: US (occurrence: None)
  Receive Date: 20211108
  Receipt Date: 20211108
  Transmission Date: 20220303
  Serious: Yes (Other)
  Sender: FDA-Public Use
  Company Number: None

PATIENT
  Age: 62 Year
  Sex: Female
  Weight: 72.45 kg

DRUGS (14)
  1. HIZENTRA [Suspect]
     Active Substance: HUMAN IMMUNOGLOBULIN G
     Indication: Immunodeficiency common variable
     Dosage: FREQUENCY : WEEKLY;?
     Route: 058
  2. ACETAMINOPHEN [Concomitant]
     Active Substance: ACETAMINOPHEN
  3. aciphex 20 mg [Concomitant]
  4. Ativan 0.5 mg [Concomitant]
  5. Brovana 15 mcg/2 mL [Concomitant]
  6. Cardizem CD 180 mg [Concomitant]
  7. Combivent 18-103 mcg [Concomitant]
  8. LAMOTRIGINE [Concomitant]
     Active Substance: LAMOTRIGINE
  9. levothyroxine sodium 137 mcg [Concomitant]
  10. methotrexate sodium 50 mg/2 mL [Concomitant]
  11. METOPROLOL [Concomitant]
     Active Substance: METOPROLOL
  12. PRADAXA [Concomitant]
     Active Substance: DABIGATRAN ETEXILATE MESYLATE
  13. Trelegy Ellipta 25, 62.5, 100 mcg [Concomitant]
  14. Xopenex HFA 45 mcg/act [Concomitant]

REACTIONS (2)
  - Infusion site swelling [None]
  - Infusion site irritation [None]

NARRATIVE: CASE EVENT DATE: 20211028
